FAERS Safety Report 9852145 (Version 1)
Quarter: 2014Q1

REPORT INFORMATION
  Report Type: Spontaneous
  Country: US (occurrence: None)
  Receive Date: 20140127
  Receipt Date: 20140127
  Transmission Date: 20141002
  Serious: Yes (Hospitalization)
  Sender: FDA-Public Use
  Company Number: 2011US-44117

PATIENT
  Age: 22 Year
  Sex: Female

DRUGS (1)
  1. IBUPROFEN [Suspect]
     Indication: MENSTRUAL DISCOMFORT
     Route: 048

REACTIONS (5)
  - Toxic epidermal necrolysis [None]
  - Hypotension [None]
  - Aspartate aminotransferase increased [None]
  - No therapeutic response [None]
  - Heavy exposure to ultraviolet light [None]
